FAERS Safety Report 6089204-2 (Version None)
Quarter: 2009Q1

REPORT INFORMATION
  Report Type: 
  Country: None (occurrence: None)
  Receive Date: 20090219
  Receipt Date: 20090211
  Transmission Date: 20090719
  Serious: Yes (Other)
  Sender: FDA-Public Use
  Company Number: CHNY2009DE00690

PATIENT
  Age: 67 Year
  Sex: Female
  Weight: 65 kg

DRUGS (6)
  1. NICOTINE [Suspect]
     Dosage: 21 MG, QD, TRANSDERMAL
     Route: 062
     Dates: start: 20090112, end: 20090112
  2. METFORMIN HCL [Concomitant]
  3. SIMVASTATIN [Concomitant]
  4. BISOPROLOL (BISOPROLOL) [Concomitant]
  5. ASS-RATIOPHARM (ACETYLSALICYLIC ACID) [Concomitant]
  6. GLIBEN (GLIBENCLAMIDE) [Concomitant]

REACTIONS (5)
  - CARDIAC FIBRILLATION [None]
  - HEADACHE [None]
  - HYPERTENSION [None]
  - PALPITATIONS [None]
  - SLEEP DISORDER [None]
